FAERS Safety Report 7705930-0 (Version None)
Quarter: 2011Q3

REPORT INFORMATION
  Report Type: 
  Country: None (occurrence: None)
  Receive Date: 20110824
  Receipt Date: 20110822
  Transmission Date: 20111222
  Serious: Yes (Other)
  Sender: FDA-Public Use
  Company Number: KR-PFIZER INC-2011193285

PATIENT
  Sex: Male

DRUGS (4)
  1. LASIX [Suspect]
     Indication: OEDEMA PERIPHERAL
     Route: 048
  2. INSULIN [Concomitant]
     Indication: DIABETES MELLITUS
  3. ALDACTONE [Suspect]
     Indication: OEDEMA PERIPHERAL
     Route: 048
  4. ASPIRIN [Concomitant]

REACTIONS (3)
  - CYSTITIS [None]
  - HYPERTONIC BLADDER [None]
  - MICTURITION URGENCY [None]
